FAERS Safety Report 5022730-3 (Version None)
Quarter: 2006Q2

REPORT INFORMATION
  Report Type: 
  Country: None (occurrence: None)
  Receive Date: 20060609
  Receipt Date: 20060510
  Transmission Date: 20061013
  Serious: Yes (Death, Life-Threatening, Hospitalization, Other)
  Sender: FDA-Public Use
  Company Number: PHBS2006JP07129

PATIENT
  Age: 61 Year
  Sex: Male

DRUGS (11)
  1. RIBALL [Suspect]
     Indication: HYPERURICAEMIA
     Dosage: 100 MG, QD
     Route: 048
     Dates: end: 20060510
  2. PANALDINE [Suspect]
     Indication: MYOCARDIAL INFARCTION
     Dosage: 100 MG, BID
     Route: 048
     Dates: end: 20060510
  3. DORNER [Suspect]
     Indication: ARTERIOSCLEROSIS
     Dosage: 40 UG, BID
     Route: 048
     Dates: end: 20060510
  4. DIOVAN [Suspect]
     Indication: HYPERTENSION
     Dosage: 40 MG, BID
     Route: 048
     Dates: end: 20060510
  5. LUVOX [Concomitant]
     Indication: DEPRESSION
     Dosage: 150 MG, UNK
     Route: 048
     Dates: end: 20060513
  6. HORIZON [Concomitant]
     Indication: DEPRESSION
     Dosage: 2 MG, UNK
     Route: 048
     Dates: end: 20060513
  7. TETRAMIDE [Concomitant]
     Indication: DEPRESSION
     Dosage: 60 MG, UNK
     Route: 048
     Dates: end: 20060513
  8. ROHYPNOL [Concomitant]
     Indication: INSOMNIA
     Dosage: 1 MG, UNK
     Dates: end: 20060513
  9. TAKEPRON [Concomitant]
     Indication: GASTRIC ULCER
     Dosage: 30 MG, UNK
     Route: 048
     Dates: end: 20060513
  10. ULCERLMIN [Concomitant]
     Indication: GASTRIC ULCER
     Dosage: 2.7 G, UNK
     Route: 048
     Dates: end: 20060513
  11. TORSEMIDE [Concomitant]
     Indication: CARDIAC FAILURE
     Dosage: 8 MG, UNK
     Route: 048
     Dates: end: 20060513

REACTIONS (4)
  - CHEST X-RAY ABNORMAL [None]
  - DYSPNOEA [None]
  - INTERSTITIAL LUNG DISEASE [None]
  - PYREXIA [None]
